FAERS Safety Report 6288552-0 (Version None)
Quarter: 2009Q3

REPORT INFORMATION
  Report Type: 
  Country: None (occurrence: None)
  Receive Date: 20090729
  Receipt Date: 20090715
  Transmission Date: 20100115
  Serious: Yes (Other)
  Sender: FDA-Public Use
  Company Number: FR-GENENTECH-287510

PATIENT
  Sex: Female

DRUGS (4)
  1. XOLAIR [Suspect]
     Indication: ASTHMA
     Dosage: 225 MG, 1/MONTH
     Dates: start: 20070208
  2. XOLAIR [Suspect]
     Dosage: 150 MG, UNK
  3. XOLAIR [Suspect]
     Dosage: 225 MG, UNK
     Dates: start: 20090310
  4. SYMBICORT [Concomitant]
     Indication: DRUG USE FOR UNKNOWN INDICATION
     Dosage: UNK

REACTIONS (9)
  - ASTHENIA [None]
  - COUGH [None]
  - DIZZINESS [None]
  - HEADACHE [None]
  - HYPOTENSION [None]
  - LYMPHADENOPATHY [None]
  - MUSCULAR WEAKNESS [None]
  - THROAT IRRITATION [None]
  - URTICARIA CHRONIC [None]
